FAERS Safety Report 5537142-3 (Version None)
Quarter: 2007Q4

REPORT INFORMATION
  Report Type: 
  Country: None (occurrence: None)
  Receive Date: 20071205
  Receipt Date: 20071205
  Transmission Date: 20080405
  Serious: Yes (Hospitalization)
  Sender: FDA-Public Use
  Company Number: None

PATIENT
  Age: 58 Year
  Sex: Male
  Weight: 126.735 kg

DRUGS (27)
  1. TAXOTERE [Suspect]
     Indication: PROSTATE CANCER
     Dosage: 90MG IV Q 21 DAYS
     Route: 042
  2. KETOCONAZOLE [Suspect]
     Indication: PROSTATE CANCER
     Dosage: 200MG PO TID
     Route: 048
  3. AVIVA [Concomitant]
  4. BUPROPION HCL [Concomitant]
  5. CYCLOBENZAPRINE HCL [Concomitant]
  6. DEXAMETHASONE TAB [Concomitant]
  7. DOCETAXEL [Concomitant]
  8. DOCUSATE [Concomitant]
  9. EZETIMIBE [Concomitant]
  10. FERROUS [Concomitant]
  11. GABAPENTIN [Concomitant]
  12. HYDROCODONE BITARTRATE [Concomitant]
  13. HYDROCORTISONE INSULIN NPH [Concomitant]
  14. INSULIN ASPART [Concomitant]
  15. ISOSIRBIDE MONITRATE [Concomitant]
  16. KETOCONAZOLE [Concomitant]
  17. LISINOPRIL [Concomitant]
  18. METOPROLOL [Concomitant]
  19. MOMETASONE FUROATE [Concomitant]
  20. NIFEDIPINE [Concomitant]
  21. NITROGLYCERIN [Concomitant]
  22. OMEPRAZOLE [Concomitant]
  23. PROCHLORPERAZINE [Concomitant]
  24. ROSIGLITAZONE [Concomitant]
  25. TERAZOSIN HCL [Concomitant]
  26. TRAMADOL HCL [Concomitant]
  27. VENLAFAXINE HCL [Concomitant]

REACTIONS (5)
  - BLOOD GLUCOSE INCREASED [None]
  - CHEST PAIN [None]
  - HYPERHIDROSIS [None]
  - HYPOGLYCAEMIA [None]
  - LETHARGY [None]
